FAERS Safety Report 6122933-0 (Version None)
Quarter: 2009Q1

REPORT INFORMATION
  Report Type: 
  Country: None (occurrence: None)
  Receive Date: 20090318
  Receipt Date: 20090309
  Transmission Date: 20090719
  Serious: Yes (Hospitalization)
  Sender: FDA-Public Use
  Company Number: PHHY2009DE08995

PATIENT
  Age: 71 Year
  Sex: Male
  Weight: 88 kg

DRUGS (9)
  1. EXFORGE [Suspect]
     Indication: HYPERTENSION
     Dosage: 10 MG, QD
     Route: 048
  2. RASILEZ [Suspect]
     Indication: HYPERTENSION
     Dosage: 300 MG, QD
     Route: 048
     Dates: end: 20090130
  3. ACTRAPHANE [Concomitant]
     Indication: TYPE 2 DIABETES MELLITUS
     Dosage: 20 IU, QD
     Route: 058
     Dates: start: 20030101
  4. ACTRAPID MC [Concomitant]
     Indication: TYPE 2 DIABETES MELLITUS
     Dosage: 3 IN DAY
     Route: 058
     Dates: start: 20030101
  5. ALLOPURINOL [Concomitant]
     Indication: HYPERURICAEMIA
     Dosage: 100 MG, QD
     Route: 048
  6. FALITHROM [Concomitant]
     Indication: BRADYARRHYTHMIA
     Dosage: 3 IN DAY
     Route: 048
  7. QUERTO [Concomitant]
     Indication: HYPERTENSION
     Dosage: 2 IN DAY
     Route: 048
  8. SIMVAHEXAL [Concomitant]
     Indication: HYPERTRIGLYCERIDAEMIA
     Dosage: 20 MG, QD
     Route: 048
  9. TORSEMIDE [Concomitant]
     Indication: HYPERTENSION
     Dosage: 2 IN DAY
     Route: 048

REACTIONS (10)
  - ACTIVATED PARTIAL THROMBOPLASTIN TIME PROLONGED [None]
  - BLOOD CREATININE INCREASED [None]
  - BLOOD FIBRINOGEN INCREASED [None]
  - BLOOD UREA INCREASED [None]
  - CARDIAC FAILURE [None]
  - DYSPNOEA [None]
  - PNEUMONIA [None]
  - PULMONARY OEDEMA [None]
  - RENAL FAILURE ACUTE [None]
  - WHITE BLOOD CELL COUNT INCREASED [None]
